FAERS Safety Report 15883298 (Version 1)
Quarter: 2019Q1

REPORT INFORMATION
  Report Type: Spontaneous
  Country: DE (occurrence: DE)
  Receive Date: 20190129
  Receipt Date: 20190129
  Transmission Date: 20190417
  Serious: Yes (Hospitalization)
  Sender: FDA-Public Use
  Company Number: DE-ACCORD-103690

PATIENT
  Age: 76 Year
  Sex: Female
  Weight: 76 kg

DRUGS (13)
  1. DEKRISTOL [Concomitant]
     Active Substance: CHOLECALCIFEROL
     Dosage: 20 000 IU / WEEK, 1X / WKHTL.
     Route: 048
  2. RISPERIDONE. [Concomitant]
     Active Substance: RISPERIDONE
     Dosage: 3 MG, 0-0-1
     Route: 048
  3. HYDROMORPHONE/HYDROMORPHONE HYDROCHLORIDE [Concomitant]
     Dosage: 8 MG, 1-1-1
     Route: 048
  4. URIVESC [Concomitant]
     Active Substance: TROSPIUM CHLORIDE
     Dosage: 60 MG, 1-0-0, SUSTAINED RELEASE CAPSULES
     Route: 048
  5. NOVALGIN (METAMIZOLE SODIUM) [Concomitant]
     Active Substance: METAMIZOLE SODIUM
     Dosage: 500 MG, 1-1-1, TABLETS
     Route: 048
  6. TAVOR [Concomitant]
     Dosage: B.B.
     Route: 048
  7. MOVICOL [Concomitant]
     Active Substance: POLYETHYLENE GLYCOL 3350\POTASSIUM CHLORIDE\SODIUM BICARBONATE\SODIUM CHLORIDE
     Dosage: B.B.
     Route: 048
  8. KALINOR-RETARD P [Concomitant]
     Dosage: 0-2-0, SUSTAINED-RELEASE CAPSULES
     Route: 048
  9. HYDROCHLOROTHIAZIDE. [Concomitant]
     Active Substance: HYDROCHLOROTHIAZIDE
     Dosage: 25 MG, 1-0-0, TABLETS
     Route: 048
  10. OXCARBAZEPINE. [Concomitant]
     Active Substance: OXCARBAZEPINE
     Dosage: 150 MG, 1-0-1, TABLETS
     Route: 048
  11. VENLAFAXINE/VENLAFAXINE HYDROCHLORIDE [Concomitant]
     Dosage: 150 MG, 1-0-0, SUSTAINED RELEASE CAPSULES
     Route: 048
  12. OMEP [Concomitant]
     Active Substance: OMEPRAZOLE
     Dosage: 20 MG, 1-0-0
     Route: 048
  13. FUROSEMIDE. [Suspect]
     Active Substance: FUROSEMIDE
     Indication: PRODUCT USED FOR UNKNOWN INDICATION
     Dosage: 40 MG, 1-0-0, TABLETS
     Route: 048

REACTIONS (3)
  - Dizziness [Unknown]
  - Hypokalaemia [Unknown]
  - Fall [Unknown]
